FAERS Safety Report 7017638-8 (Version None)
Quarter: 2010Q3

REPORT INFORMATION
  Report Type: 
  Country: None (occurrence: None)
  Receive Date: 20100928
  Receipt Date: 20100916
  Transmission Date: 20110219
  Serious: Yes (Other)
  Sender: FDA-Public Use
  Company Number: US-PFIZER INC-2010117731

PATIENT
  Sex: Female
  Weight: 65.76 kg

DRUGS (5)
  1. LYRICA [Suspect]
     Indication: NERVE COMPRESSION
     Dosage: 50 MG, 2X/DAY
     Route: 048
     Dates: start: 20100701
  2. XYZAL [Concomitant]
     Indication: HYPERSENSITIVITY
     Dosage: 5 MG, 1X/DAY
     Route: 048
     Dates: start: 20100901
  3. EXELON [Concomitant]
     Indication: MEMORY IMPAIRMENT
     Dosage: UNK
     Route: 062
  4. ACTONEL [Concomitant]
     Indication: BONE DENSITY ABNORMAL
     Dosage: UNK
     Route: 048
     Dates: start: 20100913
  5. PERCOCET [Concomitant]
     Indication: BACK PAIN
     Dosage: 5/325MG, AS NEEDED
     Route: 048

REACTIONS (8)
  - BALANCE DISORDER [None]
  - DISORIENTATION [None]
  - DIZZINESS [None]
  - EYE DISORDER [None]
  - FATIGUE [None]
  - FEAR [None]
  - JOINT INSTABILITY [None]
  - SOMNOLENCE [None]
